FAERS Safety Report 6849222-0 (Version None)
Quarter: 2010Q3

REPORT INFORMATION
  Report Type: 
  Country: None (occurrence: None)
  Receive Date: 20100716
  Receipt Date: 20071012
  Transmission Date: 20110219
  Serious: No
  Sender: FDA-Public Use
  Company Number: US-PFIZER INC-2007082012

PATIENT
  Sex: Male
  Weight: 81.818 kg

DRUGS (8)
  1. CHANTIX [Suspect]
     Indication: SMOKING CESSATION THERAPY
     Dates: start: 20070824
  2. NICOTROL [Suspect]
     Indication: SMOKING CESSATION THERAPY
     Route: 055
  3. PLAVIX [Concomitant]
  4. ALTACE [Concomitant]
  5. PLETAL [Concomitant]
  6. COUMADIN [Concomitant]
  7. TEMAZEPAM [Concomitant]
  8. MELATONIN [Concomitant]

REACTIONS (2)
  - ABNORMAL DREAMS [None]
  - STRESS [None]
